FAERS Safety Report 13589354 (Version 2)
Quarter: 2017Q2

REPORT INFORMATION
  Report Type: Spontaneous
  Country: JP (occurrence: JP)
  Receive Date: 20170529
  Receipt Date: 20170607
  Transmission Date: 20170830
  Serious: Yes (Other)
  Sender: FDA-Public Use
  Company Number: JP-009507513-1705JPN002475J

PATIENT
  Age: 79 Year
  Sex: Male
  Weight: 54 kg

DRUGS (8)
  1. ACELIO [Concomitant]
     Active Substance: ACETAMINOPHEN
     Indication: ANALGESIC THERAPY
     Dosage: 1 G, PRN
     Route: 051
     Dates: start: 20161126, end: 20161207
  2. ENEVO [Concomitant]
     Indication: NUTRITIONAL SUPPLEMENTATION
     Dosage: 500 ML, QD
     Route: 051
     Dates: start: 20161127, end: 20161201
  3. CANCIDAS [Suspect]
     Active Substance: CASPOFUNGIN ACETATE
     Indication: PERITONITIS
     Dosage: 70 MG, QD
     Route: 041
     Dates: start: 20161125, end: 20161125
  4. TAZOPIPE [Concomitant]
     Active Substance: PIPERACILLIN SODIUM\TAZOBACTAM SODIUM
     Indication: PERITONITIS
     Dosage: 4.5 G, QID
     Route: 051
     Dates: start: 20161125, end: 20161207
  5. PANTHENYL [Concomitant]
     Indication: PROPHYLAXIS
     Dosage: 1.5 G, QD
     Route: 051
     Dates: start: 20161126, end: 20161126
  6. TAKEPRON [Concomitant]
     Active Substance: LANSOPRAZOLE
     Indication: GASTRIC PERFORATION
     Dosage: 30 MG, BID
     Route: 051
     Dates: start: 20161126, end: 20161126
  7. NOREPINEPHRINE. [Concomitant]
     Active Substance: NOREPINEPHRINE
     Indication: SEPTIC SHOCK
     Dosage: 6 MG, TID
     Route: 051
     Dates: start: 20161126, end: 20161130
  8. CANCIDAS [Suspect]
     Active Substance: CASPOFUNGIN ACETATE
     Indication: PERITONITIS
     Dosage: 50 MG, QD
     Route: 041
     Dates: start: 20161126, end: 20161201

REACTIONS (1)
  - Ascites [Not Recovered/Not Resolved]

NARRATIVE: CASE EVENT DATE: 20161202
